FAERS Safety Report 4934935-8 (Version None)
Quarter: 2006Q1

REPORT INFORMATION
  Report Type: 
  Country: None (occurrence: None)
  Receive Date: 20060303
  Receipt Date: 20060303
  Transmission Date: 20060701
  Serious: No
  Sender: FDA-Public Use
  Company Number: None

PATIENT
  Age: 18 Year
  Sex: Male

DRUGS (2)
  1. CORICIDIN [Suspect]
     Indication: DRUG ABUSER
     Dosage: 10 TABS ORAL
     Route: 048
     Dates: start: 20060211, end: 20060211
  2. DELSYM [Suspect]
     Indication: DRUG ABUSER
     Dosage: 10 OUNCES ORAL
     Route: 048
     Dates: start: 20060211, end: 20060211

REACTIONS (6)
  - DISORIENTATION [None]
  - DRUG ABUSER [None]
  - INTENTIONAL OVERDOSE [None]
  - SOMNOLENCE [None]
  - SWOLLEN TONGUE [None]
  - VISION BLURRED [None]
